FAERS Safety Report 10599753 (Version 1)
Quarter: 2014Q4

REPORT INFORMATION
  Report Type: Spontaneous
  Country: AT (occurrence: AT)
  Receive Date: 20141121
  Receipt Date: 20141121
  Transmission Date: 20150529
  Serious: Yes (Hospitalization)
  Sender: FDA-Public Use
  Company Number: AT-ELI_LILLY_AND_COMPANY-AT201411004881

PATIENT
  Age: 83 Year
  Sex: Female

DRUGS (2)
  1. LANTUS [Concomitant]
     Active Substance: INSULIN GLARGINE
     Dosage: UNK, BID
     Route: 065
  2. TERIPARATIDE [Suspect]
     Active Substance: TERIPARATIDE
     Indication: OSTEOPOROSIS
     Dosage: 20 UG, QD
     Route: 065
     Dates: start: 20140508

REACTIONS (5)
  - Incorrect product storage [Unknown]
  - Fracture displacement [Unknown]
  - Drug dose omission [Unknown]
  - Impaired healing [Unknown]
  - Vertigo [Unknown]

NARRATIVE: CASE EVENT DATE: 20141108
